FAERS Safety Report 5191214-4 (Version None)
Quarter: 2006Q4

REPORT INFORMATION
  Report Type: 
  Country: None (occurrence: None)
  Receive Date: 20061218
  Receipt Date: 20061204
  Transmission Date: 20070319
  Serious: Yes (Hospitalization)
  Sender: FDA-Public Use
  Company Number: GXKR2006GR07859

PATIENT
  Age: 67 Year
  Sex: Male

DRUGS (3)
  1. METOPROLOL (NGX) (METOPROLOL) UNKNOWN [Suspect]
     Indication: CORONARY ARTERY DISEASE
     Dosage: 25 MG, TID, ORAL
     Route: 048
  2. ASPIRIN [Concomitant]
  3. SIMVASTATIN [Concomitant]

REACTIONS (12)
  - ARTHROPOD STING [None]
  - DERMATITIS ALLERGIC [None]
  - DIZZINESS [None]
  - HEADACHE [None]
  - HEART RATE INCREASED [None]
  - HYPERSENSITIVITY [None]
  - MYOCARDIAL ISCHAEMIA [None]
  - PARAESTHESIA [None]
  - PARAESTHESIA ORAL [None]
  - RESPIRATORY DISTRESS [None]
  - SKIN TEST POSITIVE [None]
  - TRYPTASE INCREASED [None]
